FAERS Safety Report 5846215-7 (Version None)
Quarter: 2008Q3

REPORT INFORMATION
  Report Type: 
  Country: None (occurrence: None)
  Receive Date: 20080813
  Receipt Date: 20080604
  Transmission Date: 20090109
  Serious: Yes (Hospitalization)
  Sender: FDA-Public Use
  Company Number: ADE2008-0216

PATIENT
  Age: 89 Year
  Sex: Male

DRUGS (14)
  1. FLUOXETINE HYDROCHLORIDE [Suspect]
     Indication: DEPRESSION
     Dosage: 20MG, DAILY; ORAL
     Route: 048
     Dates: start: 20080131
  2. SOLIFENACIN [Suspect]
     Indication: URINARY INCONTINENCE
     Dosage: 10 MG, DAILY; ORAL
     Route: 048
     Dates: start: 20080131
  3. AMLODIPINE [Concomitant]
  4. CLOPIDOGREL [Concomitant]
  5. FERROUS SULFATE TAB [Concomitant]
  6. FUROSEMIDE [Concomitant]
  7. GLYCERYL TRINITRATE PRN [Concomitant]
  8. ISOSORBIDE MONONITRATE [Concomitant]
  9. METFORMIN [Concomitant]
  10. OMEPRAZOLE [Concomitant]
  11. ACETAMINOPHEN [Concomitant]
  12. RAMIPRIL [Concomitant]
  13. SALBUTAMOL PRN [Concomitant]
  14. SPIRIVA [Concomitant]

REACTIONS (4)
  - CONFUSIONAL STATE [None]
  - FALL [None]
  - MUSCULAR WEAKNESS [None]
  - URINARY TRACT INFECTION [None]
